FAERS Safety Report 7178392-2 (Version None)
Quarter: 2010Q4

REPORT INFORMATION
  Report Type: 
  Country: None (occurrence: None)
  Receive Date: 20101220
  Receipt Date: 20101208
  Transmission Date: 20110411
  Serious: Yes (Other)
  Sender: FDA-Public Use
  Company Number: IT-WATSON-2010-15608

PATIENT
  Age: 45 Year
  Sex: Female

DRUGS (3)
  1. LAMOTRIGINE [Suspect]
     Indication: CONVULSION
     Dosage: 100 MG, BID
     Dates: start: 20090608
  2. LAMOTRIGINE [Suspect]
     Dosage: 50 MG, DAILY
     Dates: start: 20090525, end: 20090607
  3. PHENOBARBITAL [Suspect]
     Indication: COMPLEX PARTIAL SEIZURES
     Dosage: 100 MG, DAILY
     Dates: end: 20090706

REACTIONS (3)
  - DRUG INTERACTION [None]
  - PLATELET COUNT DECREASED [None]
  - WHITE BLOOD CELL COUNT DECREASED [None]
